FAERS Safety Report 5253319-9 (Version None)
Quarter: 2007Q1

REPORT INFORMATION
  Report Type: 
  Country: None (occurrence: None)
  Receive Date: 20070301
  Receipt Date: 20070219
  Transmission Date: 20070707
  Serious: Yes (Other)
  Sender: FDA-Public Use
  Company Number: PHEH2007US02273

PATIENT
  Age: 67 Year
  Sex: Female
  Weight: 62.585 kg

DRUGS (10)
  1. ESTROGENS [Suspect]
     Indication: MENOPAUSE
     Dates: start: 19860101, end: 19990101
  2. PREMPRO [Suspect]
     Indication: MENOPAUSE
     Route: 048
     Dates: start: 19960101, end: 19990101
  3. FUROSEMIDE [Concomitant]
     Dosage: 40 MG, UNK
     Route: 048
     Dates: start: 19960812, end: 19981109
  4. PROMETRIUM [Suspect]
     Dosage: 100 MG, UNK
     Route: 048
     Dates: start: 19990203
  5. CYCRIN [Suspect]
     Dosage: 2.5 MG TO 10 MG
     Route: 048
     Dates: start: 19980514, end: 19990617
  6. MEDROXYPROGESTERONE [Suspect]
     Dosage: 2.5 MG, UNK
     Route: 048
     Dates: start: 19990812
  7. ESTRADERM [Suspect]
     Indication: MENOPAUSE
     Dosage: 0.1 MG, UNK
     Route: 061
     Dates: start: 19960815, end: 19990830
  8. PROVERA [Suspect]
     Route: 048
     Dates: start: 19890101, end: 19990101
  9. PREMARIN [Suspect]
  10. ASCORBIC ACID [Concomitant]

REACTIONS (23)
  - ANXIETY [None]
  - ARTHRALGIA [None]
  - BACK PAIN [None]
  - BIOPSY BREAST [None]
  - BREAST CANCER [None]
  - BREAST MASS [None]
  - BREAST RECONSTRUCTION [None]
  - CHEST X-RAY ABNORMAL [None]
  - DEPRESSION [None]
  - DUODENOGASTRIC REFLUX [None]
  - ENDOMETRIAL DISORDER [None]
  - FALL [None]
  - FRACTURED SACRUM [None]
  - HYPERTENSION [None]
  - HYPERTHYROIDISM [None]
  - MASTECTOMY [None]
  - NEUROPATHY PERIPHERAL [None]
  - OSTEOPENIA [None]
  - OSTEOPOROSIS [None]
  - PAIN IN EXTREMITY [None]
  - SPINAL OSTEOARTHRITIS [None]
  - UTERINE DILATION AND CURETTAGE [None]
  - UTERINE LEIOMYOMA [None]
